FAERS Safety Report 15127787 (Version 3)
Quarter: 2022Q3

REPORT INFORMATION
  Report Type: Report from Study
  Country: CA (occurrence: CA)
  Receive Date: 20180710
  Receipt Date: 20220908
  Transmission Date: 20221026
  Serious: Yes (Other)
  Sender: FDA-Public Use
  Company Number: CA-SHIRE-CA201823910

PATIENT
  Age: 62 Year
  Sex: Female
  Weight: 127 kg

DRUGS (5)
  1. HUMAN IMMUNOGLOBULIN G [Suspect]
     Active Substance: HUMAN IMMUNOGLOBULIN G
     Indication: Secondary immunodeficiency
     Dosage: 18 GRAM, 1/WEEK
     Route: 058
     Dates: start: 20180508
  2. HUMAN IMMUNOGLOBULIN G [Suspect]
     Active Substance: HUMAN IMMUNOGLOBULIN G
     Dosage: 18 GRAM, 1/WEEK
     Route: 058
     Dates: start: 20180508
  3. HUMAN IMMUNOGLOBULIN G [Suspect]
     Active Substance: HUMAN IMMUNOGLOBULIN G
     Dosage: 18 GRAM, 1/WEEK
     Route: 050
     Dates: start: 20180508
  4. GAMMAGARD [Concomitant]
     Active Substance: HUMAN IMMUNOGLOBULIN G
     Indication: Product used for unknown indication
     Route: 042
  5. HIZENTRA [Concomitant]
     Active Substance: HUMAN IMMUNOGLOBULIN G
     Indication: Product used for unknown indication
     Dosage: UNK
     Route: 065

REACTIONS (10)
  - Herpes zoster [Unknown]
  - Brain oedema [Not Recovered/Not Resolved]
  - Feeling abnormal [Recovering/Resolving]
  - Rheumatoid arthritis [Unknown]
  - Anisocoria [Not Recovered/Not Resolved]
  - Nerve injury [Not Recovered/Not Resolved]
  - Speech disorder [Not Recovered/Not Resolved]
  - COVID-19 [Recovered/Resolved]
  - Dizziness [Recovering/Resolving]
  - Product supply issue [Unknown]

NARRATIVE: CASE EVENT DATE: 20180612
